FAERS Safety Report 26108042 (Version 1)
Quarter: 2025Q4

REPORT INFORMATION
  Report Type: Spontaneous
  Country: JP (occurrence: JP)
  Receive Date: 20251201
  Receipt Date: 20251201
  Transmission Date: 20260118
  Serious: Yes (Hospitalization)
  Sender: MYLAN
  Company Number: JP-MYLANLABS-2025M1099415

PATIENT
  Age: 57 Year
  Sex: Female

DRUGS (5)
  1. NORVASC [Interacting]
     Active Substance: AMLODIPINE BESYLATE
     Indication: Product used for unknown indication
     Dosage: 150 MILLIGRAM
  2. EPINASTINE HYDROCHLORIDE [Interacting]
     Active Substance: EPINASTINE HYDROCHLORIDE
     Indication: Product used for unknown indication
     Dosage: 400 MILLIGRAM
  3. IMEGLIMIN [Interacting]
     Active Substance: IMEGLIMIN
     Indication: Product used for unknown indication
     Dosage: 24500 MILLIGRAM
  4. CANDESARTAN CILEXETIL [Interacting]
     Active Substance: CANDESARTAN CILEXETIL
     Indication: Product used for unknown indication
     Dosage: 240 MILLIGRAM
  5. LOXOPROFEN SODIUM [Interacting]
     Active Substance: LOXOPROFEN SODIUM
     Indication: Product used for unknown indication
     Dosage: 240 MILLIGRAM

REACTIONS (3)
  - Toxicity to various agents [Unknown]
  - Drug interaction [Unknown]
  - Intentional overdose [Unknown]
